FAERS Safety Report 23491918 (Version 1)
Quarter: 2024Q1

REPORT INFORMATION
  Report Type: Spontaneous
  Country: CN (occurrence: CN)
  Receive Date: 20240207
  Receipt Date: 20240207
  Transmission Date: 20240410
  Serious: Yes (Other)
  Sender: FDA-Public Use
  Company Number: CN-ALKEM LABORATORIES LIMITED-CN-ALKEM-2024-01748

PATIENT
  Age: 65 Year
  Sex: Male

DRUGS (9)
  1. ISONIAZID [Suspect]
     Active Substance: ISONIAZID
     Indication: Tuberculosis
     Dosage: 0.3 GRAM, QD
     Route: 065
  2. ISONIAZID [Suspect]
     Active Substance: ISONIAZID
     Dosage: UNK
     Route: 065
  3. ETHAMBUTOL [Suspect]
     Active Substance: ETHAMBUTOL HYDROCHLORIDE
     Indication: Tuberculosis
     Dosage: 1 GRAM, QD
     Route: 065
  4. ETHAMBUTOL [Suspect]
     Active Substance: ETHAMBUTOL HYDROCHLORIDE
     Dosage: UNK
     Route: 065
  5. PYRAZINAMIDE [Suspect]
     Active Substance: PYRAZINAMIDE
     Indication: Tuberculosis
     Dosage: 1.5 GRAM, QD
     Route: 065
  6. PYRAZINAMIDE [Suspect]
     Active Substance: PYRAZINAMIDE
     Dosage: UNK
     Route: 065
  7. RIFAPENTINE [Suspect]
     Active Substance: RIFAPENTINE
     Indication: Tuberculosis
     Dosage: 0.6 GRAM (BI WEEKLY)
     Route: 065
  8. RIFAPENTINE [Suspect]
     Active Substance: RIFAPENTINE
     Dosage: UNK
     Route: 065
  9. LEUCOGEN [Concomitant]
     Active Substance: LEUCOGEN
     Indication: Myelodysplastic syndrome
     Dosage: UNK
     Route: 065

REACTIONS (1)
  - Myelosuppression [Unknown]
